FAERS Safety Report 6047985-8 (Version None)
Quarter: 2009Q1

REPORT INFORMATION
  Report Type: 
  Country: None (occurrence: None)
  Receive Date: 20090123
  Receipt Date: 20090115
  Transmission Date: 20090719
  Serious: Yes (Other)
  Sender: FDA-Public Use
  Company Number: PHHY2008GB05070

PATIENT
  Sex: Male

DRUGS (4)
  1. EXELON [Suspect]
     Indication: PARKINSON'S DISEASE
     Dosage: 1.5 MG, BID
     Route: 048
     Dates: start: 20080219, end: 20080313
  2. CITALOPRAM HYDROBROMIDE [Suspect]
     Dosage: 10 MG, UNK
     Route: 048
     Dates: start: 20080201, end: 20080313
  3. QUETIAPINE FUMARATE [Suspect]
     Dosage: 25 MG, UNK
     Route: 048
     Dates: start: 20080201, end: 20080313
  4. MADOPAR [Concomitant]
     Indication: PARKINSON'S DISEASE
     Dosage: 25/100, 5 TABS/DAY
     Route: 048

REACTIONS (1)
  - NEUROLEPTIC MALIGNANT SYNDROME [None]
